FAERS Safety Report 23450307 (Version 1)
Quarter: 2024Q1

REPORT INFORMATION
  Report Type: Spontaneous
  Country: US (occurrence: US)
  Receive Date: 20240129
  Receipt Date: 20240129
  Transmission Date: 20240409
  Serious: No
  Sender: FDA-Public Use
  Company Number: ENDG23-05151

PATIENT
  Sex: Female

DRUGS (1)
  1. BUPROPION HYDROCHLORIDE [Suspect]
     Active Substance: BUPROPION HYDROCHLORIDE
     Indication: Depression
     Dosage: 150 MILLIGRAM, DAILY (BUPROPION 150 MG XL THREE TABLETS A DAY)
     Route: 065

REACTIONS (3)
  - Depressed mood [Unknown]
  - Product dose omission issue [Unknown]
  - Incorrect dose administered [Unknown]
